FAERS Safety Report 4778328-5 (Version None)
Quarter: 2005Q3

REPORT INFORMATION
  Report Type: 
  Country: None (occurrence: None)
  Receive Date: 20050926
  Receipt Date: 20050913
  Transmission Date: 20060218
  Serious: Yes (Hospitalization)
  Sender: FDA-Public Use
  Company Number: PHHO2005KR14458

PATIENT
  Age: 17 Year
  Sex: Male

DRUGS (3)
  1. MYCOPHENOLIC ACID [Suspect]
     Indication: TRANSPLANT
     Dosage: 1080 MG/DAY
     Route: 048
     Dates: start: 20050129, end: 20050217
  2. NEORAL [Concomitant]
     Indication: TRANSPLANT
     Dosage: 450 MG/DAY
     Dates: start: 20050129, end: 20050217
  3. PREDNISOLONE [Concomitant]
     Indication: TRANSPLANT
     Dosage: UNK, UNK
     Dates: start: 20050129

REACTIONS (2)
  - BLOOD CREATININE INCREASED [None]
  - RENAL TUBULAR NECROSIS [None]
